FAERS Safety Report 9460584 (Version 1)
Quarter: 2013Q3

REPORT INFORMATION
  Report Type: Spontaneous
  Country: AU (occurrence: AU)
  Receive Date: 20130815
  Receipt Date: 20130815
  Transmission Date: 20140515
  Serious: Yes (Other)
  Sender: FDA-Public Use
  Company Number: AU-PFIZER INC-2013233534

PATIENT
  Age: 59 Year
  Sex: Male
  Weight: 118 kg

DRUGS (4)
  1. CYTARABINE [Suspect]
     Dosage: UNK
     Dates: start: 20070607
  2. ETOPOSIDE [Suspect]
     Dosage: UNK
     Dates: start: 20070607
  3. IDARUBICIN HCL [Suspect]
     Dosage: UNK
     Dates: start: 20070607
  4. VANCOCIN [Suspect]
     Indication: PYREXIA
     Dosage: 2 G, 1X/DAY
     Route: 042
     Dates: start: 20070616, end: 20070621

REACTIONS (4)
  - Hepatitis [Not Recovered/Not Resolved]
  - Tubulointerstitial nephritis [Not Recovered/Not Resolved]
  - Encephalopathy [Not Recovered/Not Resolved]
  - Sepsis [Unknown]
